FAERS Safety Report 5263435-3 (Version None)
Quarter: 2007Q1

REPORT INFORMATION
  Report Type: 
  Country: None (occurrence: None)
  Receive Date: 20061213
  Receipt Date: 20040930
  Transmission Date: 20070707
  Serious: No
  Sender: FDA-Public Use
  Company Number: 2004UW16759

PATIENT
  Age: 86 Year
  Sex: Female
  Weight: 60.3284 kg

DRUGS (4)
  1. IRESSA [Suspect]
     Indication: NON-SMALL CELL LUNG CANCER
     Dosage: 250 MG PO
     Route: 048
     Dates: start: 20040702, end: 20040731
  2. CARTIA XT [Concomitant]
  3. TRIAMTERENE AND HYDROCHLOROTHIAZIDE [Concomitant]
  4. MINITRAN [Concomitant]

REACTIONS (1)
  - DISEASE PROGRESSION [None]
